FAERS Safety Report 9162897 (Version 1)
Quarter: 2013Q1

REPORT INFORMATION
  Report Type: Spontaneous
  Country: NZ (occurrence: None)
  Receive Date: 20130219
  Receipt Date: 20130219
  Transmission Date: 20140127
  Serious: Yes (Other)
  Sender: FDA-Public Use
  Company Number: 2013034718

PATIENT
  Age: 43 Year
  Sex: Female

DRUGS (10)
  1. PRIVIGEN [Suspect]
     Indication: IMMUNODEFICIENCY COMMON VARIABLE
     Route: 042
     Dates: start: 20121217, end: 20121217
  2. RANITIDINE (RANITIDINE) [Concomitant]
  3. CALCITRIOL [Concomitant]
  4. NOVORAPID [Concomitant]
  5. WARFARIN (WARFARIN) [Concomitant]
  6. CISAPRIDE (CISAPRIDE) [Concomitant]
  7. DOMPERIDONE (DOMPERIDONE) [Concomitant]
  8. SPIRONOLACTONE (SPIRONOLACTONE) [Concomitant]
  9. TERIPARATIDE (TERIPARATIDE) [Concomitant]
  10. SLOW-K (POTASSIUM CHLORIDE) [Concomitant]

REACTIONS (9)
  - Meningitis chemical [None]
  - Lethargy [None]
  - Nausea [None]
  - Headache [None]
  - Neck pain [None]
  - Vomiting [None]
  - Fatigue [None]
  - Malaise [None]
  - Incorrect drug administration rate [None]
